FAERS Safety Report 5737326-5 (Version None)
Quarter: 2008Q2

REPORT INFORMATION
  Report Type: 
  Country: None (occurrence: None)
  Receive Date: 20080514
  Receipt Date: 20080506
  Transmission Date: 20081010
  Serious: Yes (Other)
  Sender: FDA-Public Use
  Company Number: US-ASTRAZENECA-2008UW09441

PATIENT
  Age: 72 Year
  Sex: Female

DRUGS (1)
  1. ARIMIDEX [Suspect]
     Route: 048
     Dates: start: 20070101

REACTIONS (10)
  - BLOOD PRESSURE INCREASED [None]
  - CARPAL TUNNEL SYNDROME [None]
  - FLUID RETENTION [None]
  - HEART RATE INCREASED [None]
  - HYPOAESTHESIA [None]
  - NEUROPATHY PERIPHERAL [None]
  - OSTEOARTHRITIS [None]
  - PAIN IN EXTREMITY [None]
  - SPINAL COLUMN STENOSIS [None]
  - WEIGHT INCREASED [None]
